FAERS Safety Report 5717820-3 (Version None)
Quarter: 2008Q2

REPORT INFORMATION
  Report Type: 
  Country: None (occurrence: None)
  Receive Date: 20080425
  Receipt Date: 20080421
  Transmission Date: 20081010
  Serious: Yes (Hospitalization)
  Sender: FDA-Public Use
  Company Number: US-AVENTIS-200811779EU

PATIENT
  Age: 80 Year
  Sex: Female

DRUGS (4)
  1. NITROGLYCERIN [Suspect]
     Route: 060
  2. NITROGLYCERIN [Suspect]
     Route: 042
  3. OPIUM ALKALOIDS AND DERIVATIVES [Concomitant]
  4. BRONCHODILATOR INHALERS [Concomitant]

REACTIONS (1)
  - SYNCOPE [None]
